FAERS Safety Report 4699579-4 (Version None)
Quarter: 2005Q2

REPORT INFORMATION
  Report Type: 
  Country: None (occurrence: None)
  Receive Date: 20050624
  Receipt Date: 20050614
  Transmission Date: 20051028
  Serious: No
  Sender: FDA-Public Use
  Company Number: 2005AP03297

PATIENT
  Age: 81 Year
  Sex: Female

DRUGS (2)
  1. SEROQUEL [Suspect]
     Route: 048
     Dates: start: 20020207
  2. SEROQUEL [Suspect]
     Route: 048
     Dates: start: 20050214

REACTIONS (1)
  - GRANULOCYTE COUNT DECREASED [None]
